FAERS Safety Report 21303349 (Version 2)
Quarter: 2023Q1

REPORT INFORMATION
  Report Type: Report from Study
  Country: US (occurrence: US)
  Receive Date: 20220907
  Receipt Date: 20230117
  Transmission Date: 20230418
  Serious: Yes (Hospitalization)
  Sender: FDA-Public Use
  Company Number: US-UCBSA-2022005812

PATIENT
  Sex: Female

DRUGS (4)
  1. BRIVARACETAM [Suspect]
     Active Substance: BRIVARACETAM
     Indication: Seizure
     Dosage: 50 MILLIGRAM, 2X/DAY (BID)
  2. BRIVARACETAM [Suspect]
     Active Substance: BRIVARACETAM
     Dosage: 100 MILLIGRAM, 2X/DAY (BID)
     Route: 048
  3. BRIVARACETAM [Suspect]
     Active Substance: BRIVARACETAM
     Dosage: BRIVIACT 100MG ON HALF
  4. LAMICTAL [Concomitant]
     Active Substance: LAMOTRIGINE
     Indication: Product used for unknown indication
     Dosage: 225 MILLIGRAM, 2X/DAY (BID)

REACTIONS (12)
  - Fall [Not Recovered/Not Resolved]
  - Head injury [Not Recovered/Not Resolved]
  - Concussion [Not Recovered/Not Resolved]
  - Hip fracture [Not Recovered/Not Resolved]
  - Memory impairment [Not Recovered/Not Resolved]
  - Cognitive disorder [Not Recovered/Not Resolved]
  - Wrong technique in product usage process [Unknown]
  - Headache [Unknown]
  - Vision blurred [Unknown]
  - Intentional product misuse [Unknown]
  - Head titubation [Unknown]
  - Tremor [Unknown]
